FAERS Safety Report 9492075 (Version 2)
Quarter: 2013Q4

REPORT INFORMATION
  Report Type: Report from Study
  Country: ES (occurrence: ES)
  Receive Date: 20130830
  Receipt Date: 20131008
  Transmission Date: 20140711
  Serious: Yes (Death, Hospitalization)
  Sender: FDA-Public Use
  Company Number: ES-SANOFI-AVENTIS-2013SA074728

PATIENT
  Age: 68 Year
  Sex: Male

DRUGS (14)
  1. AFLIBERCEPT [Suspect]
     Indication: COLORECTAL CANCER
     Route: 042
     Dates: start: 20130705, end: 20130705
  2. AFLIBERCEPT [Suspect]
     Indication: COLORECTAL CANCER
     Route: 042
     Dates: start: 20130531, end: 20130531
  3. 5-FU [Suspect]
     Indication: COLORECTAL CANCER
     Route: 040
     Dates: start: 20130531, end: 20130531
  4. 5-FU [Suspect]
     Indication: COLORECTAL CANCER
     Route: 042
     Dates: start: 20130531, end: 20130531
  5. 5-FU [Suspect]
     Indication: COLORECTAL CANCER
     Route: 040
     Dates: start: 20130705, end: 20130705
  6. 5-FU [Suspect]
     Indication: COLORECTAL CANCER
     Route: 042
     Dates: start: 20130705, end: 20130705
  7. IRINOTECAN [Suspect]
     Indication: COLORECTAL CANCER
     Route: 042
     Dates: start: 20130531, end: 20130531
  8. IRINOTECAN [Suspect]
     Indication: COLORECTAL CANCER
     Route: 042
     Dates: start: 20130705, end: 20130705
  9. LEUCOVORIN [Suspect]
     Indication: COLORECTAL CANCER
     Route: 042
     Dates: start: 20130531, end: 20130531
  10. LEUCOVORIN [Suspect]
     Indication: COLORECTAL CANCER
     Route: 042
     Dates: start: 20130705, end: 20130705
  11. CORTICOSTEROID NOS [Concomitant]
     Dates: start: 20130607
  12. ANALGESICS [Concomitant]
     Dates: start: 20130607
  13. OMEPRAZOLE [Concomitant]
     Dates: start: 20130607
  14. SPIRONOLACTONE [Concomitant]
     Dates: start: 20130607

REACTIONS (2)
  - Acute pulmonary oedema [Fatal]
  - Hip fracture [Not Recovered/Not Resolved]
